FAERS Safety Report 4731662-7 (Version None)
Quarter: 2005Q3

REPORT INFORMATION
  Report Type: 
  Country: None (occurrence: None)
  Receive Date: 20050725
  Receipt Date: 20041206
  Transmission Date: 20060218
  Serious: Yes (Other)
  Sender: FDA-Public Use
  Company Number: WAES 0412USA00782

PATIENT
  Sex: Male
  Weight: 133.8111 kg

DRUGS (14)
  1. VIOXX [Suspect]
     Indication: BACK INJURY
     Dosage: PO
     Route: 048
     Dates: start: 20010101, end: 20040101
  2. CELEBREX [Concomitant]
  3. CELEXA [Concomitant]
  4. HYDROIURIL [Concomitant]
  5. LIPITOR [Concomitant]
  6. MEVACOR [Concomitant]
  7. PRINIVIL [Concomitant]
  8. VICODIN [Concomitant]
  9. ZANTAC [Concomitant]
  10. ZOCOR [Concomitant]
  11. ATENOLOL [Concomitant]
  12. CARISOPRODOL [Concomitant]
  13. CORTICOSTEROIDS [Concomitant]
  14. IBUPROFEN [Concomitant]

REACTIONS (16)
  - ANGINA PECTORIS [None]
  - ARRHYTHMIA [None]
  - ASTHENIA [None]
  - CARDIOVASCULAR DISORDER [None]
  - CHEST PAIN [None]
  - DYSPNOEA [None]
  - DYSPNOEA EXERTIONAL [None]
  - GASTRIC DISORDER [None]
  - GASTRIC HAEMORRHAGE [None]
  - GASTRIC PERFORATION [None]
  - GASTRIC ULCER [None]
  - GASTROOESOPHAGEAL REFLUX DISEASE [None]
  - HEADACHE [None]
  - HYPERTENSION [None]
  - OEDEMA PERIPHERAL [None]
  - PAIN IN EXTREMITY [None]
